FAERS Safety Report 12147765 (Version 1)
Quarter: 2016Q1

REPORT INFORMATION
  Report Type: Spontaneous
  Country: TN (occurrence: TN)
  Receive Date: 20160304
  Receipt Date: 20160304
  Transmission Date: 20160526
  Serious: Yes (Other)
  Sender: FDA-Public Use
  Company Number: TN-WATSON-2016-03889

PATIENT
  Age: 9 Year
  Sex: Male

DRUGS (7)
  1. ONCOVIN [Suspect]
     Active Substance: VINCRISTINE SULFATE
     Indication: B-CELL TYPE ACUTE LEUKAEMIA
     Dosage: 1.5 MG, ON DAY 8 (INDUCTION REGIMEN)
     Route: 065
     Dates: start: 20130423
  2. DEXAMETHASONE (UNKNOWN) [Suspect]
     Active Substance: DEXAMETHASONE
     Indication: B-CELL TYPE ACUTE LEUKAEMIA
     Dosage: 6 MG, DAILY (INDUCTION CHEMOTHERAPY)
     Route: 065
     Dates: start: 20130416
  3. ADRIBLASTINE [Suspect]
     Active Substance: DOXORUBICIN
     Indication: B-CELL TYPE ACUTE LEUKAEMIA
     Dosage: 30 MG, ON DAY 8 (INDUCTION CHEMOTHERAPY)
     Route: 051
     Dates: start: 20130423
  4. METHOTREXATE BIODIM [Suspect]
     Active Substance: METHOTREXATE
     Indication: B-CELL TYPE ACUTE LEUKAEMIA
     Dosage: 12 MG, ON DAYS 1 AND 11
     Route: 037
  5. HYDROCORTISONE. [Suspect]
     Active Substance: HYDROCORTISONE
     Indication: B-CELL TYPE ACUTE LEUKAEMIA
     Dosage: 15 MG, ON DAYS 1 AND 11
     Route: 037
  6. DEXAMETHASONE (UNKNOWN) [Suspect]
     Active Substance: DEXAMETHASONE
     Dosage: 6 MG/M2, DAILY
     Route: 065
  7. ARACYTINE [Suspect]
     Active Substance: CYTARABINE
     Indication: B-CELL TYPE ACUTE LEUKAEMIA
     Dosage: 30 MG, ON DAYS 1 AND 11
     Route: 037

REACTIONS (1)
  - Posterior reversible encephalopathy syndrome [Recovered/Resolved]

NARRATIVE: CASE EVENT DATE: 20130427
